FAERS Safety Report 6706695-1 (Version None)
Quarter: 2010Q2

REPORT INFORMATION
  Report Type: 
  Country: None (occurrence: None)
  Receive Date: 20100503
  Receipt Date: 20100421
  Transmission Date: 20101027
  Serious: Yes (Other)
  Sender: FDA-Public Use
  Company Number: TR-ELI_LILLY_AND_COMPANY-TR201004006514

PATIENT
  Sex: Male

DRUGS (4)
  1. HUMULIN R [Suspect]
     Dosage: 6 U, 3/D
     Route: 064
     Dates: start: 20091121, end: 20100217
  2. HUMULIN N [Suspect]
     Dosage: 6 U, DAILY (1/D)
     Route: 064
     Dates: start: 20091121, end: 20100217
  3. VITAMIN TAB [Concomitant]
     Dosage: UNK, DAILY (1/D)
     Route: 064
     Dates: start: 20090501, end: 20100217
  4. IRON [Concomitant]
     Dosage: UNK, DAILY (1/D)
     Route: 064
     Dates: start: 20090901, end: 20100217

REACTIONS (2)
  - DRUG EXPOSURE DURING PREGNANCY [None]
  - JAUNDICE NEONATAL [None]
